FAERS Safety Report 21757879 (Version 1)
Quarter: 2022Q4

REPORT INFORMATION
  Report Type: Spontaneous
  Country: US (occurrence: None)
  Receive Date: 20221221
  Receipt Date: 20221221
  Transmission Date: 20230113
  Serious: Yes (Death, Other)
  Sender: FDA-Public Use
  Company Number: US-ROCHE-2882876

PATIENT
  Age: 78 Year
  Sex: Male
  Weight: 123 kg

DRUGS (1)
  1. ACTIVASE [Suspect]
     Active Substance: ALTEPLASE
     Indication: Cerebrovascular accident
     Dosage: ONCE DOSE
     Route: 042
     Dates: start: 20210521, end: 20210521

REACTIONS (4)
  - Angioedema [Fatal]
  - Haemorrhage [Unknown]
  - Brain stem haemorrhage [Unknown]
  - Eye pain [Unknown]

NARRATIVE: CASE EVENT DATE: 20210521
